FAERS Safety Report 6789757-2 (Version None)
Quarter: 2010Q2

REPORT INFORMATION
  Report Type: 
  Country: None (occurrence: None)
  Receive Date: 20100624
  Receipt Date: 20100614
  Transmission Date: 20101027
  Serious: Yes (Hospitalization)
  Sender: FDA-Public Use
  Company Number: JP-PFIZER INC-2010031450

PATIENT
  Age: 70 Year
  Sex: Male
  Weight: 66.4 kg

DRUGS (1)
  1. SUNITINIB MALATE [Suspect]
     Indication: RENAL CELL CARCINOMA
     Dosage: 50 MG, 1X/DAY
     Route: 048
     Dates: start: 20100223, end: 20100305

REACTIONS (3)
  - DRUG ERUPTION [None]
  - HEPATIC FAILURE [None]
  - RENAL FAILURE [None]
